FAERS Safety Report 9297907 (Version 2)
Quarter: 2013Q2

REPORT INFORMATION
  Report Type: Report from Study
  Country: US (occurrence: US)
  Receive Date: 20130520
  Receipt Date: 20130625
  Transmission Date: 20140414
  Serious: Yes (Hospitalization)
  Sender: FDA-Public Use
  Company Number: US-JNJFOC-20130505431

PATIENT
  Age: 27 Year
  Sex: Male
  Weight: 111 kg

DRUGS (5)
  1. TYLENOL PM [Suspect]
     Indication: PRODUCT USED FOR UNKNOWN INDICATION
     Route: 048
  2. QUETIAPINE [Concomitant]
     Route: 065
  3. VALPROIC ACID [Concomitant]
     Route: 065
  4. METHYLPHENIDATE [Concomitant]
     Route: 065
  5. RISPERIDONE [Concomitant]
     Route: 065

REACTIONS (2)
  - Overdose [Recovered/Resolved]
  - Abdominal pain [Recovered/Resolved]
